FAERS Safety Report 9559661 (Version 2)
Quarter: 2014Q1

REPORT INFORMATION
  Report Type: Spontaneous
  Country: US (occurrence: None)
  Receive Date: 20130906
  Receipt Date: 20131205
  Transmission Date: 20141002
  Serious: Yes (Other)
  Sender: FDA-Public Use
  Company Number: 163-POMAL-13080748

PATIENT
  Age: 73 Year
  Sex: Female

DRUGS (6)
  1. POMALYST (POMALIDOMIDE) (CAPSULES) [Suspect]
     Indication: PLASMA CELL MYELOMA
     Dosage: 4 MG, 21 IN 21 D
     Route: 048
     Dates: start: 20130621
  2. LISINOPRIL [Concomitant]
  3. LASIX (FUROSEMIDE) [Concomitant]
  4. GABAPENTIN [Concomitant]
  5. POTASSIUM CHLORIDE [Concomitant]
  6. ASPIRIN (ACETYLSALICYLIC ACID) [Concomitant]

REACTIONS (4)
  - Swollen tongue [None]
  - Stomatitis [None]
  - Rash [None]
  - Local swelling [None]
